FAERS Safety Report 8291368-7 (Version None)
Quarter: 2012Q2

REPORT INFORMATION
  Report Type: 
  Country: None (occurrence: None)
  Receive Date: 20120417
  Receipt Date: 20120411
  Transmission Date: 20120825
  Serious: Yes (Hospitalization)
  Sender: FDA-Public Use
  Company Number: CA-GLAXOSMITHKLINE-A0958089A

PATIENT
  Sex: Female

DRUGS (15)
  1. GAVISCON [Concomitant]
  2. MG OXIDE [Concomitant]
  3. ADVAIR DISKUS 100/50 [Concomitant]
  4. VENTOLIN [Concomitant]
  5. NEXIUM [Concomitant]
  6. PLENDIL [Concomitant]
  7. SERTRALINE HYDROCHLORIDE [Concomitant]
  8. ASPIRIN [Concomitant]
  9. TYLENOL W/ CODEINE NO. 3 [Concomitant]
  10. SIMVASTATIN [Concomitant]
  11. LIPITOR [Concomitant]
     Dosage: 60MG PER DAY
  12. SPIRIVA [Concomitant]
  13. VOTRIENT [Suspect]
     Indication: RENAL CANCER METASTATIC
     Dosage: 800MG PER DAY
     Route: 048
     Dates: start: 20110426
  14. HYDROCHLOROTHIAZIDE [Concomitant]
  15. DIOVAN [Concomitant]

REACTIONS (6)
  - DECREASED APPETITE [None]
  - HIP FRACTURE [None]
  - FALL [None]
  - DIARRHOEA [None]
  - BALANCE DISORDER [None]
  - ANOSMIA [None]
